FAERS Safety Report 18706639 (Version 1)
Quarter: 2021Q1

REPORT INFORMATION
  Report Type: Spontaneous
  Country: US (occurrence: US)
  Receive Date: 20210106
  Receipt Date: 20210106
  Transmission Date: 20210419
  Serious: Yes (Disabling)
  Sender: FDA-Public Use
  Company Number: None

PATIENT
  Age: 61 Year
  Sex: Female
  Weight: 88.2 kg

DRUGS (14)
  1. UBRELVY [Suspect]
     Active Substance: UBROGEPANT
     Indication: MIGRAINE
     Dosage: ?          QUANTITY:1 TABLET(S);?
     Route: 048
     Dates: start: 20200901, end: 20201231
  2. UBIQUINOL [Concomitant]
     Active Substance: UBIQUINOL
  3. FISH OIL [Concomitant]
     Active Substance: FISH OIL
  4. XIIDRA EYEDROPS [Concomitant]
  5. TRIPTANS AS NEEDED [Concomitant]
  6. ZINC. [Suspect]
     Active Substance: ZINC
  7. CALCIUM/MAGNESIUM [Concomitant]
     Active Substance: CALCIUM\MAGNESIUM
  8. TOPAMAX [Concomitant]
     Active Substance: TOPIRAMATE
  9. BIOLDENTICAL HORMONES(COMPOUND) [Concomitant]
  10. EFFEXOR XR [Concomitant]
     Active Substance: VENLAFAXINE HYDROCHLORIDE
  11. VITAMIN D3 [Concomitant]
     Active Substance: CHOLECALCIFEROL
  12. CLONAZEPAM. [Concomitant]
     Active Substance: CLONAZEPAM
  13. MULTIVITAMIN/MINERAL [Concomitant]
  14. VITAMIN B12 [Concomitant]
     Active Substance: CYANOCOBALAMIN

REACTIONS (3)
  - Diarrhoea [None]
  - Dehydration [None]
  - Muscle spasms [None]

NARRATIVE: CASE EVENT DATE: 20201231
